FAERS Safety Report 10597213 (Version 1)
Quarter: 2014Q4

REPORT INFORMATION
  Report Type: Spontaneous
  Country: US (occurrence: US)
  Receive Date: 20141121
  Receipt Date: 20141121
  Transmission Date: 20150529
  Serious: Yes (Other)
  Sender: FDA-Public Use
  Company Number: US-TEVA-515923USA

PATIENT
  Sex: Female

DRUGS (1)
  1. CRYSELLE [Suspect]
     Active Substance: ETHINYL ESTRADIOL\NORGESTREL
     Dosage: NORGESTREL AND ETHINYL ESTRADIOL 0.3 MG/0.03MG)
     Route: 065

REACTIONS (1)
  - Haemorrhage [Unknown]
